FAERS Safety Report 9931172 (Version 1)
Quarter: 2014Q1

REPORT INFORMATION
  Report Type: Report from Study
  Country: DE (occurrence: DE)
  Receive Date: 20140228
  Receipt Date: 20140228
  Transmission Date: 20141002
  Serious: Yes (Hospitalization)
  Sender: FDA-Public Use
  Company Number: DE-ROCHE-1352529

PATIENT
  Age: 73 Year
  Sex: Female

DRUGS (3)
  1. TOCILIZUMAB [Suspect]
     Indication: RHEUMATOID ARTHRITIS
     Route: 065
     Dates: start: 201207
  2. TOCILIZUMAB [Suspect]
     Route: 065
     Dates: start: 20121203
  3. TOCILIZUMAB [Suspect]
     Route: 065
     Dates: start: 20130625

REACTIONS (1)
  - Device dislocation [Unknown]
